FAERS Safety Report 22037736 (Version 1)
Quarter: 2023Q1

REPORT INFORMATION
  Report Type: Report from Study
  Country: US (occurrence: None)
  Receive Date: 20230227
  Receipt Date: 20230227
  Transmission Date: 20230418
  Serious: Yes (Hospitalization)
  Sender: FDA-Public Use
  Company Number: US-ROCHE-2662070

PATIENT
  Age: 54 Year
  Sex: Female
  Weight: 109.09 kg

DRUGS (5)
  1. ATEZOLIZUMAB [Suspect]
     Active Substance: ATEZOLIZUMAB
     Indication: Invasive breast carcinoma
     Dosage: DAYS 1 AND 22 (LAST ADMINISTERED DOSE: 16-MAR-2020
     Route: 042
     Dates: start: 20200113
  2. PACLITAXEL [Suspect]
     Active Substance: PACLITAXEL
     Indication: Invasive breast carcinoma
     Dosage: WEEKLY; DAYS 1, 8, 15, 22, 29, AND 36; (LAST ADMINISTERED DOSE: 23-MAR-2020)
     Route: 042
     Dates: start: 20200113
  3. PERTUZUMAB [Suspect]
     Active Substance: PERTUZUMAB
     Indication: Invasive breast carcinoma
     Dosage: LOADING DOSE OF 840 MG FOLLOWED BY MAINTENANCE DOSE OF 420 MG?ON DAYS 1 AND 22; (LAST ADMINISTERED D
     Route: 042
     Dates: start: 20200113
  4. PERTUZUMAB [Suspect]
     Active Substance: PERTUZUMAB
     Dosage: C1D1 (LAST ADMINISTERED DOSE:16-MAR-2020)
     Route: 042
     Dates: start: 20200113
  5. TRASTUZUMAB [Suspect]
     Active Substance: TRASTUZUMAB
     Indication: Invasive breast carcinoma
     Dosage: LOAIDNG DOSE OF 8 MG.KG FOLLOWED BY MAINTENANCE DOSE OF 6 MG.KG?DAYS 1 AND 22; (LAST ADMINISTERED DO
     Route: 042
     Dates: start: 20200113

REACTIONS (1)
  - Secondary cerebellar degeneration [Recovered/Resolved with Sequelae]

NARRATIVE: CASE EVENT DATE: 20200417
